FAERS Safety Report 4567661-8 (Version None)
Quarter: 2005Q1

REPORT INFORMATION
  Report Type: 
  Country: None (occurrence: None)
  Receive Date: 20050114
  Receipt Date: 20050114
  Transmission Date: 20050727
  Serious: No
  Sender: FDA-Public Use
  Company Number: None

PATIENT
  Sex: Male

DRUGS (1)
  1. NITROGLYCERIN [Suspect]
     Indication: CORONARY ARTERY DISEASE

REACTIONS (2)
  - DERMATITIS ALLERGIC [None]
  - PHARMACEUTICAL PRODUCT COMPLAINT [None]
